FAERS Safety Report 8349559-2 (Version None)
Quarter: 2012Q2

REPORT INFORMATION
  Report Type: 
  Country: None (occurrence: None)
  Receive Date: 20120510
  Receipt Date: 20120507
  Transmission Date: 20120825
  Serious: Yes (Hospitalization)
  Sender: FDA-Public Use
  Company Number: US-BAYER-2012-045463

PATIENT
  Age: 32 Year
  Sex: Female

DRUGS (4)
  1. KEFLEX [Concomitant]
     Route: 048
  2. M.V.I. [Concomitant]
  3. PERCOCET-5 [Concomitant]
     Indication: PAIN
     Dosage: PRN
  4. YAZ [Suspect]
     Dosage: UNK
     Dates: start: 20090401

REACTIONS (1)
  - DEEP VEIN THROMBOSIS [None]
